FAERS Safety Report 21261994 (Version 2)
Quarter: 2022Q3

REPORT INFORMATION
  Report Type: Spontaneous
  Country: US (occurrence: US)
  Receive Date: 20220827
  Receipt Date: 20220921
  Transmission Date: 20221027
  Serious: Yes (Hospitalization, Other)
  Sender: FDA-Public Use
  Company Number: US-AMGEN-USASP2022143553

PATIENT
  Age: 17 Year
  Sex: Male

DRUGS (4)
  1. RITUXIMAB [Suspect]
     Active Substance: RITUXIMAB
     Indication: Burkitt^s leukaemia
     Dosage: UNK
     Route: 065
  2. FILGRASTIM [Suspect]
     Active Substance: FILGRASTIM
     Indication: Prophylaxis
     Dosage: UNK
     Route: 065
  3. CYTARABINE [Concomitant]
     Active Substance: CYTARABINE
     Indication: Burkitt^s leukaemia
     Dosage: UNK
     Route: 065
  4. ETOPOSIDE [Concomitant]
     Active Substance: ETOPOSIDE
     Indication: Burkitt^s leukaemia
     Dosage: UNK
     Route: 065

REACTIONS (4)
  - Stomatococcal infection [Unknown]
  - Clostridium difficile colitis [Recovered/Resolved]
  - Staphylococcal infection [Recovered/Resolved]
  - Off label use [Unknown]
